FAERS Safety Report 13054254 (Version 4)
Quarter: 2017Q1

REPORT INFORMATION
  Report Type: Report from Study
  Country: ES (occurrence: ES)
  Receive Date: 20161222
  Receipt Date: 20170209
  Transmission Date: 20170428
  Serious: Yes (Death)
  Sender: FDA-Public Use
  Company Number: ES-PFIZER INC-2016583243

PATIENT
  Age: 75 Year
  Sex: Male
  Weight: 70 kg

DRUGS (9)
  1. PARACETAMOL [Concomitant]
     Active Substance: ACETAMINOPHEN
     Dosage: UNK
     Dates: start: 20161011, end: 20161209
  2. ATENOLOL. [Concomitant]
     Active Substance: ATENOLOL
     Dosage: UNK
     Dates: start: 2004, end: 20161209
  3. MORPHINE [Concomitant]
     Active Substance: MORPHINE
     Dosage: UNK
     Dates: start: 20151108, end: 20161209
  4. OLARATUMAB [Suspect]
     Active Substance: OLARATUMAB
     Dosage: 20 MG/KG, EVERY 3 WEEKS (2ND CYCLE, ON DAYS 1 AND 8)
     Route: 042
     Dates: start: 20161128, end: 20161205
  5. TRAMADOL. [Concomitant]
     Active Substance: TRAMADOL
     Dosage: UNK
     Dates: start: 20161011, end: 20161209
  6. PRAVASTATIN. [Concomitant]
     Active Substance: PRAVASTATIN
     Dosage: UNK
     Dates: start: 2010, end: 20161209
  7. OLARATUMAB [Suspect]
     Active Substance: OLARATUMAB
     Indication: SOFT TISSUE SARCOMA
     Dosage: 20 MG/KG, CYCLIC (ON DAYS 1 AND 8)
     Route: 042
     Dates: start: 20161108
  8. DEXRAZOXANE. [Suspect]
     Active Substance: DEXRAZOXANE
     Indication: SOFT TISSUE SARCOMA
     Dosage: 1312 MG, EVERY 3 WEEKS (DAY 1 EVERY 21 DAYS CYCLE)
     Route: 042
     Dates: start: 20161128, end: 20161128
  9. DOXORUBICIN HCL [Suspect]
     Active Substance: DOXORUBICIN HYDROCHLORIDE
     Indication: SOFT TISSUE SARCOMA
     Dosage: 75 MG/M2, EVERY 3 WEEKS (DAY 1 EVERY 21 DAYS CYCLE)
     Route: 042
     Dates: start: 20161128, end: 20161128

REACTIONS (1)
  - Cardiopulmonary failure [Fatal]

NARRATIVE: CASE EVENT DATE: 20161209
